FAERS Safety Report 11336515 (Version 1)
Quarter: 2015Q3

REPORT INFORMATION
  Report Type: Spontaneous
  Country: FR (occurrence: FR)
  Receive Date: 20150804
  Receipt Date: 20150804
  Transmission Date: 20151125
  Serious: Yes (Hospitalization)
  Sender: FDA-Public Use
  Company Number: FR-SA-2015SA110863

PATIENT
  Age: 76 Year
  Sex: Male
  Weight: 66 kg

DRUGS (8)
  1. EUPANTOL [Concomitant]
     Active Substance: PANTOPRAZOLE SODIUM
     Dosage: STRENGTH: 20 MG
     Route: 048
  2. GEMCITABINE [Suspect]
     Active Substance: GEMCITABINE\GEMCITABINE HYDROCHLORIDE
     Indication: CHEMOTHERAPY
     Dosage: ROUTE OF ADMINISTRATION: INTRAVENOUS INFUSION
     Route: 042
     Dates: start: 20101109, end: 20110222
  3. MONOCLONAL ANTIBODIES [Suspect]
     Active Substance: UNSPECIFIED INGREDIENT
     Indication: CHEMOTHERAPY
     Dosage: ROUTE: INTRAVENOUS INFUSION
     Route: 042
     Dates: start: 20100413, end: 20100719
  4. REVLIMID [Suspect]
     Active Substance: LENALIDOMIDE
     Indication: CHEMOTHERAPY
     Dosage: 18.75 MG (25 MG,21 IN 28 DAY(S))
     Route: 048
     Dates: start: 20080208, end: 20100210
  5. MABTHERA [Suspect]
     Active Substance: RITUXIMAB
     Indication: CHEMOTHERAPY
     Dosage: ROUTE: INTRAVENOUS INFUSION
     Route: 042
     Dates: start: 20060505, end: 20110222
  6. SERESTA [Concomitant]
     Active Substance: OXAZEPAM
     Route: 048
  7. RISPERDAL [Concomitant]
     Active Substance: RISPERIDONE
     Route: 048
  8. ELOXATIN [Suspect]
     Active Substance: OXALIPLATIN
     Indication: CHEMOTHERAPY
     Dosage: ROUTE OF ADMINISTRATION: INTRAVENOUS INFUSION
     Route: 042
     Dates: start: 20101109, end: 20110222

REACTIONS (1)
  - B-cell type acute leukaemia [Recovering/Resolving]

NARRATIVE: CASE EVENT DATE: 201502
